FAERS Safety Report 26012150 (Version 2)
Quarter: 2025Q4

REPORT INFORMATION
  Report Type: Spontaneous
  Country: US (occurrence: US)
  Receive Date: 20251107
  Receipt Date: 20251114
  Transmission Date: 20260117
  Serious: Yes (Other)
  Sender: OTSUKA
  Company Number: US-MMM-Otsuka-NO8K2RUC

PATIENT
  Age: 24 Year
  Sex: Female
  Weight: 54.43 kg

DRUGS (2)
  1. ABILIFY [Suspect]
     Active Substance: ARIPIPRAZOLE
     Indication: Paranoid personality disorder
     Dosage: UNK
  2. SPIRONOLACTONE [Concomitant]
     Active Substance: SPIRONOLACTONE
     Indication: Polycystic ovarian syndrome
     Dosage: UNK
     Route: 065

REACTIONS (21)
  - Respiratory depression [Unknown]
  - Blindness transient [Unknown]
  - Cerebrovascular accident [Unknown]
  - Illness [Unknown]
  - COVID-19 [Unknown]
  - Skin lesion [Unknown]
  - Nasal inflammation [Unknown]
  - Pharyngeal inflammation [Unknown]
  - Bowel movement irregularity [Unknown]
  - Balance disorder [Unknown]
  - Eye inflammation [Unknown]
  - Migraine [Unknown]
  - Hypoaesthesia [Unknown]
  - Head discomfort [Unknown]
  - Muscle contractions involuntary [Unknown]
  - Gait inability [Unknown]
  - Fall [Unknown]
  - Speech disorder [Unknown]
  - Pyrexia [Unknown]
  - Sedation [Unknown]
  - Off label use [Unknown]

NARRATIVE: CASE EVENT DATE: 20200701
